FAERS Safety Report 15741847 (Version 1)
Quarter: 2018Q4

REPORT INFORMATION
  Report Type: Spontaneous
  Country: US (occurrence: US)
  Receive Date: 20181219
  Receipt Date: 20181219
  Transmission Date: 20190205
  Serious: No
  Sender: FDA-Public Use
  Company Number: US-ASTRAZENECA-2018SF56766

PATIENT
  Age: 936 Month
  Sex: Female
  Weight: 68.5 kg

DRUGS (8)
  1. LISINOPRIL. [Suspect]
     Active Substance: LISINOPRIL
     Indication: BLOOD PRESSURE ABNORMAL
     Route: 048
  2. ALLEGRA [Concomitant]
     Active Substance: FEXOFENADINE HYDROCHLORIDE
     Indication: ASTHMA
     Route: 048
  3. ASPIRIN. [Concomitant]
     Active Substance: ASPIRIN
     Indication: CEREBROVASCULAR ACCIDENT
     Route: 048
  4. THYROID MEDICATIONS [Concomitant]
  5. SINGULAIR [Concomitant]
     Active Substance: MONTELUKAST SODIUM
     Indication: ASTHMA
     Route: 048
  6. PRILOSEC OTC [Suspect]
     Active Substance: OMEPRAZOLE MAGNESIUM
     Indication: GASTROOESOPHAGEAL REFLUX DISEASE
     Route: 048
  7. FLOVENT [Concomitant]
     Active Substance: FLUTICASONE PROPIONATE
     Indication: ASTHMA
     Dosage: 44 MG TWO PUFFS BID
     Route: 055
  8. BYDUREON BCISE [Suspect]
     Active Substance: EXENATIDE
     Indication: GLUCOSE TOLERANCE IMPAIRED
     Route: 058
     Dates: start: 20181101

REACTIONS (15)
  - Hypophagia [Recovered/Resolved]
  - Influenza [Recovered/Resolved]
  - Injection site mass [Not Recovered/Not Resolved]
  - Oral mucosal blistering [Recovered/Resolved]
  - Fluid intake reduced [Recovered/Resolved]
  - Vitamin D abnormal [Recovered/Resolved]
  - Asthenia [Recovering/Resolving]
  - Urticaria [Unknown]
  - Off label use [Unknown]
  - Thyroxine abnormal [Recovering/Resolving]
  - Product use in unapproved indication [Unknown]
  - Gastrooesophageal reflux disease [Not Recovered/Not Resolved]
  - Pneumonia [Recovered/Resolved]
  - Injection site pain [Not Recovered/Not Resolved]
  - Injection site warmth [Not Recovered/Not Resolved]

NARRATIVE: CASE EVENT DATE: 201802
